FAERS Safety Report 10365870 (Version 1)
Quarter: 2014Q3

REPORT INFORMATION
  Report Type: Spontaneous
  Country: US (occurrence: US)
  Receive Date: 20140806
  Receipt Date: 20140806
  Transmission Date: 20150326
  Serious: Yes (Other)
  Sender: FDA-Public Use
  Company Number: US-BAYER-2014-113088

PATIENT
  Sex: Female

DRUGS (1)
  1. LEVITRA [Suspect]
     Active Substance: VARDENAFIL HYDROCHLORIDE TRIHYDRATE
     Route: 048

REACTIONS (5)
  - Headache [None]
  - Toxicity to various agents [None]
  - Swelling [None]
  - Renal disorder [None]
  - Cardiac disorder [None]
